FAERS Safety Report 8114908 (Version 9)
Quarter: 2013Q4

REPORT INFORMATION
  Report Type: Report from Study
  Country: CA (occurrence: CA)
  Receive Date: 20110831
  Receipt Date: 20131007
  Transmission Date: 20140711
  Serious: Yes (Hospitalization, Other)
  Sender: FDA-Public Use
  Company Number: PHHY2011CA77003

PATIENT
  Age: 76 Year
  Sex: Female

DRUGS (7)
  1. SANDOSTATIN LAR [Suspect]
     Indication: POST GASTRIC SURGERY SYNDROME
     Dosage: 20 MG, QMO
     Route: 030
     Dates: start: 20110816
  2. SANDOSTATIN LAR [Suspect]
     Dosage: UNK UKN, UNK
     Dates: start: 20110911
  3. SANDOSTATIN [Suspect]
     Indication: POST GASTRIC SURGERY SYNDROME
     Dosage: UNK UKN, UNK
     Route: 058
     Dates: start: 2006
  4. METOPROLOL [Concomitant]
  5. ASA [Concomitant]
  6. PANTOPRAZOLE [Concomitant]
     Dosage: 40 MG, BID
  7. PLAVIX [Concomitant]

REACTIONS (20)
  - Circulatory collapse [Unknown]
  - Renal disorder [Unknown]
  - Syncope [Recovered/Resolved]
  - Malaise [Unknown]
  - Dyspnoea [Unknown]
  - Blood pressure systolic increased [Unknown]
  - Fall [Unknown]
  - Night sweats [Unknown]
  - Injection site swelling [Unknown]
  - Diplopia [Unknown]
  - Dysphagia [Unknown]
  - Weight decreased [Unknown]
  - Sleep disorder [Unknown]
  - Chest pain [Unknown]
  - Abdominal discomfort [Unknown]
  - Injection site pain [Unknown]
  - Diarrhoea [Unknown]
  - Headache [Unknown]
  - Frequent bowel movements [Unknown]
  - Abdominal pain upper [Unknown]
